FAERS Safety Report 4566785-9 (Version None)
Quarter: 2005Q1

REPORT INFORMATION
  Report Type: 
  Country: None (occurrence: None)
  Receive Date: 20050201
  Receipt Date: 20020102
  Transmission Date: 20050727
  Serious: Yes (Other)
  Sender: FDA-Public Use
  Company Number: US-BRISTOL-MYERS SQUIBB COMPANY-11711538

PATIENT
  Age: 41 Year
  Sex: Male

DRUGS (5)
  1. STADOL [Suspect]
     Route: 045
     Dates: start: 19960101, end: 19990101
  2. HYDROCODONE + ACETAMINOPHEN [Concomitant]
  3. ALPRAZOLAM [Concomitant]
  4. PREDNISONE [Concomitant]
  5. BUTALBITAL + CAFFEINE + ACETAMINOPHEN [Concomitant]

REACTIONS (2)
  - DEPENDENCE [None]
  - DRUG WITHDRAWAL SYNDROME [None]
